FAERS Safety Report 8306418-9 (Version None)
Quarter: 2012Q2

REPORT INFORMATION
  Report Type: 
  Country: None (occurrence: None)
  Receive Date: 20120423
  Receipt Date: 20120409
  Transmission Date: 20120825
  Serious: Yes (Hospitalization, Disabling, Other)
  Sender: FDA-Public Use
  Company Number: US-MYLANLABS-2009AC000480

PATIENT
  Age: 60 Year
  Sex: Female
  Weight: 51.71 kg

DRUGS (47)
  1. MAGNESIUM [Concomitant]
  2. AMOXICILLIN [Concomitant]
  3. PREVACID [Concomitant]
  4. TAMIFLU [Concomitant]
  5. PREVACID [Concomitant]
  6. COMBIVENT [Concomitant]
  7. LIPITOR [Concomitant]
  8. METHYLPREDNISOLONE [Concomitant]
  9. TRIHEXYPHENIDYL HCL [Concomitant]
  10. DIGOXIN [Suspect]
     Dates: start: 20060116
  11. LOVASTATIN [Concomitant]
  12. AZITHROMYCIN [Concomitant]
  13. CARAFATE [Concomitant]
  14. CITALOPRAM HYDROBROMIDE [Concomitant]
  15. LODOSYN [Concomitant]
  16. NASACORT [Concomitant]
  17. MULTI-VITAMINS [Concomitant]
  18. PROTONIX [Concomitant]
  19. LOVASTATIN [Concomitant]
  20. MELOXICAM [Concomitant]
  21. ASCORBIC ACID [Concomitant]
  22. ZOCOR [Concomitant]
  23. CELECOXIB [Concomitant]
  24. MIRALAX /00754501/ [Concomitant]
  25. NITROTAB [Concomitant]
  26. NITROGLYCERIN [Concomitant]
  27. CEFTIN [Concomitant]
  28. CIPROFLOXACIN [Concomitant]
  29. ERYTHROMYCIN [Concomitant]
  30. GATIFLOXACIN [Concomitant]
  31. TRAMADOL HYDROCHLORIDE [Concomitant]
  32. HYDROCODONE BITARTRATE [Concomitant]
  33. PREVPAC [Concomitant]
  34. ACETAZOLAMIDE [Concomitant]
  35. MUCINEX [Concomitant]
  36. DARVOCET [Concomitant]
  37. DUONEB [Concomitant]
  38. IMDUR [Concomitant]
  39. PREDNISONE TAB [Concomitant]
  40. ISOSORBIDE DINITRATE [Concomitant]
  41. ASPIRIN [Concomitant]
  42. PROPRANOLOL [Concomitant]
  43. ADVAIR DISKUS 100/50 [Concomitant]
  44. LEXAPRO [Concomitant]
  45. LORTAB [Concomitant]
  46. PHENERGAN HCL [Concomitant]
  47. TIZANIDINE HCL [Concomitant]

REACTIONS (72)
  - INTERMITTENT CLAUDICATION [None]
  - DYSPNOEA EXERTIONAL [None]
  - TREMOR [None]
  - RESPIRATORY TRACT CONGESTION [None]
  - PYREXIA [None]
  - POOR QUALITY SLEEP [None]
  - SINUSITIS [None]
  - DIZZINESS [None]
  - SYNCOPE [None]
  - ORTHOPNOEA [None]
  - PARKINSON'S DISEASE [None]
  - ILL-DEFINED DISORDER [None]
  - MUSCULOSKELETAL CHEST PAIN [None]
  - FATIGUE [None]
  - FALL [None]
  - OEDEMA [None]
  - DEPRESSION [None]
  - EXERCISE TOLERANCE DECREASED [None]
  - VENTRICULAR ARRHYTHMIA [None]
  - COUGH [None]
  - RHINORRHOEA [None]
  - DYSPNOEA [None]
  - CHEST PAIN [None]
  - SENSORY DISTURBANCE [None]
  - ANGINA PECTORIS [None]
  - DISEASE PROGRESSION [None]
  - MUSCLE SPASMS [None]
  - MUSCULOSKELETAL STIFFNESS [None]
  - RHONCHI [None]
  - SINUS DISORDER [None]
  - LABORATORY TEST ABNORMAL [None]
  - CHEST DISCOMFORT [None]
  - HEADACHE [None]
  - STERNAL WIRING [None]
  - DIABETES MELLITUS [None]
  - HYPERCHOLESTEROLAEMIA [None]
  - PERIPHERAL VASCULAR DISORDER [None]
  - BRONCHITIS [None]
  - DYSPEPSIA [None]
  - KYPHOSIS [None]
  - RASH [None]
  - HEART SOUNDS ABNORMAL [None]
  - ANXIETY [None]
  - RIB FRACTURE [None]
  - CORONARY ARTERY DISEASE [None]
  - DISABILITY [None]
  - HYPOAESTHESIA [None]
  - ARTERIOSCLEROSIS [None]
  - HYPERTENSION [None]
  - GASTROOESOPHAGEAL REFLUX DISEASE [None]
  - HYPERLIPIDAEMIA [None]
  - WHEEZING [None]
  - CHILLS [None]
  - ARTHRALGIA [None]
  - ERYTHEMA [None]
  - BREAST MASS [None]
  - PAIN IN EXTREMITY [None]
  - DYSPNOEA PAROXYSMAL NOCTURNAL [None]
  - DISEASE RECURRENCE [None]
  - PALPITATIONS [None]
  - ASTHENIA [None]
  - DISTURBANCE IN ATTENTION [None]
  - DERMATITIS [None]
  - OSTEOPENIA [None]
  - INJURY [None]
  - CORONARY ARTERY STENOSIS [None]
  - INCISION SITE PAIN [None]
  - TINNITUS [None]
  - OEDEMA PERIPHERAL [None]
  - TINEA INFECTION [None]
  - MYALGIA [None]
  - PULSE ABNORMAL [None]
